FAERS Safety Report 6304036-5 (Version None)
Quarter: 2009Q3

REPORT INFORMATION
  Report Type: 
  Country: None (occurrence: None)
  Receive Date: 20090810
  Receipt Date: 20090731
  Transmission Date: 20100115
  Serious: Yes (Other)
  Sender: FDA-Public Use
  Company Number: US-PFIZER INC-2009249884

PATIENT
  Sex: Female
  Weight: 74.8 kg

DRUGS (2)
  1. ACCUPRIL [Suspect]
     Indication: HYPERTENSION
     Dosage: 10 MG, 1X/DAY EVERY DAY
     Route: 048
     Dates: start: 19940101
  2. ACCUPRIL [Suspect]
     Dosage: 20 MG, 1X/DAY
     Dates: end: 20090722

REACTIONS (7)
  - ABDOMINAL PAIN UPPER [None]
  - BLOOD PRESSURE INADEQUATELY CONTROLLED [None]
  - BREAST CANCER [None]
  - CARDIAC DISORDER [None]
  - HYPERSENSITIVITY [None]
  - MALAISE [None]
  - PHARYNGITIS [None]
